FAERS Safety Report 15268438 (Version 1)
Quarter: 2018Q3

REPORT INFORMATION
  Report Type: Spontaneous
  Country: US (occurrence: US)
  Receive Date: 20180726
  Receipt Date: 20180726
  Transmission Date: 20181010
  Serious: Yes (Hospitalization)
  Sender: FDA-Public Use
  Company Number: None

PATIENT
  Age: 32 Year
  Sex: Female

DRUGS (1)
  1. ROCURONIUM BROMIDE. [Suspect]
     Active Substance: ROCURONIUM BROMIDE
     Indication: SURGERY
     Route: 042
     Dates: start: 20180601, end: 20180601

REACTIONS (3)
  - Bronchospasm [None]
  - Wheezing [None]
  - Cough [None]

NARRATIVE: CASE EVENT DATE: 20180601
